FAERS Safety Report 4877226-6 (Version None)
Quarter: 2005Q4

REPORT INFORMATION
  Report Type: 
  Country: None (occurrence: None)
  Receive Date: 20051206
  Receipt Date: 20050913
  Transmission Date: 20060501
  Serious: No
  Sender: FDA-Public Use
  Company Number: USA050597025

PATIENT
  Sex: Female

DRUGS (6)
  1. CYMBALTA [Suspect]
     Indication: DEPRESSION
     Dosage: 60 MG
     Dates: start: 20050124, end: 20050326
  2. ATIVAN [Concomitant]
  3. ELAVIL [Concomitant]
  4. AMBIEN [Concomitant]
  5. PERCOCET [Concomitant]
  6. ABILIFY [Concomitant]

REACTIONS (2)
  - ABNORMAL DREAMS [None]
  - SUICIDAL IDEATION [None]
